FAERS Safety Report 25903785 (Version 1)
Quarter: 2025Q4

REPORT INFORMATION
  Report Type: Spontaneous
  Country: US (occurrence: US)
  Receive Date: 20251010
  Receipt Date: 20251010
  Transmission Date: 20260117
  Serious: No
  Sender: ROCHE
  Company Number: US-ROCHE-10000403867

PATIENT
  Age: 38 Year
  Sex: Female

DRUGS (2)
  1. RITUXIMAB [Suspect]
     Active Substance: RITUXIMAB
     Indication: Product used for unknown indication
     Route: 065
  2. CABLIVI [Suspect]
     Active Substance: CAPLACIZUMAB-YHDP
     Indication: Thrombotic thrombocytopenic purpura
     Route: 058
     Dates: start: 20250828

REACTIONS (6)
  - Heavy menstrual bleeding [Recovered/Resolved]
  - Abdominal distension [Unknown]
  - Haemoglobin decreased [Recovering/Resolving]
  - Headache [Unknown]
  - Dehydration [Unknown]
  - Injection site pain [Unknown]
